FAERS Safety Report 7997318-2 (Version None)
Quarter: 2011Q4

REPORT INFORMATION
  Report Type: 
  Country: None (occurrence: None)
  Receive Date: 20111209
  Receipt Date: 20111130
  Transmission Date: 20120403
  Serious: Yes (Hospitalization)
  Sender: FDA-Public Use
  Company Number: AECAN201100238

PATIENT
  Age: 53 Year
  Sex: Female

DRUGS (14)
  1. ALBUTEROL SULFATE AUTOHALER [Concomitant]
  2. PREDNISONE TAB [Concomitant]
  3. PROLASTIN-C [Suspect]
     Indication: ALPHA-1 ANTI-TRYPSIN DEFICIENCY
     Dosage: 5400 MG; QW; IV
     Route: 042
     Dates: start: 20110713
  4. LYRICA [Concomitant]
  5. NAPROXEN [Concomitant]
  6. EFFEXOR [Concomitant]
  7. AMOXICILLIN AND CLAVULANATE POTASSIUM [Concomitant]
  8. SPIRIVA [Concomitant]
  9. DAXAS [Concomitant]
  10. AVELOX [Concomitant]
  11. OXYCODONE HCL [Concomitant]
  12. SYMBICORT [Concomitant]
  13. VARENICLINE TARTRATE [Concomitant]
  14. FLU-IMUNE [Concomitant]

REACTIONS (3)
  - HEADACHE [None]
  - INADEQUATE ANALGESIA [None]
  - DYSPNOEA [None]
